FAERS Safety Report 11266991 (Version 1)
Quarter: 2015Q3

REPORT INFORMATION
  Report Type: Spontaneous
  Country: US (occurrence: US)
  Receive Date: 20150713
  Receipt Date: 20150713
  Transmission Date: 20151125
  Serious: No
  Sender: FDA-Public Use
  Company Number: US-TAKEDA-2013-05329

PATIENT
  Age: 53 Year
  Sex: Female
  Weight: 65.31 kg

DRUGS (2)
  1. DEXAMETHASONE. [Concomitant]
     Active Substance: DEXAMETHASONE
     Indication: PRODUCT USED FOR UNKNOWN INDICATION
  2. VELCADE [Suspect]
     Active Substance: BORTEZOMIB
     Indication: PLASMA CELL MYELOMA
     Dosage: UNK
     Route: 040
     Dates: start: 201208

REACTIONS (3)
  - Infusion site discomfort [Recovered/Resolved]
  - Infusion site hypoaesthesia [Recovered/Resolved]
  - Infusion site coldness [Recovered/Resolved]

NARRATIVE: CASE EVENT DATE: 20130709
